FAERS Safety Report 21224742 (Version 1)
Quarter: 2022Q3

REPORT INFORMATION
  Report Type: Spontaneous
  Country: US (occurrence: US)
  Receive Date: 20220817
  Receipt Date: 20220817
  Transmission Date: 20221026
  Serious: No
  Sender: FDA-Public Use
  Company Number: US-OTSUKA-2022_003186

PATIENT
  Sex: Male
  Weight: 76.66 kg

DRUGS (2)
  1. ABILIFY MAINTENA [Suspect]
     Active Substance: ARIPIPRAZOLE
     Indication: Bipolar disorder
     Dosage: 300 MG, UNK
     Route: 065
     Dates: start: 2015
  2. ABILIFY MAINTENA [Suspect]
     Active Substance: ARIPIPRAZOLE
     Dosage: 400 MG,UNK
     Route: 065

REACTIONS (13)
  - Injection site paraesthesia [Unknown]
  - COVID-19 [Unknown]
  - Mental disorder [Unknown]
  - Feeling abnormal [Unknown]
  - Dysarthria [Unknown]
  - Disturbance in attention [Unknown]
  - Obsessive-compulsive disorder [Unknown]
  - Anxiety [Unknown]
  - Weight increased [Unknown]
  - Alcohol abuse [Unknown]
  - Drug ineffective [Unknown]
  - Underdose [Unknown]
  - Homeless [Unknown]
